FAERS Safety Report 5414886-5 (Version None)
Quarter: 2007Q3

REPORT INFORMATION
  Report Type: 
  Country: None (occurrence: None)
  Receive Date: 20070813
  Receipt Date: 20070803
  Transmission Date: 20080115
  Serious: Yes (Other)
  Sender: FDA-Public Use
  Company Number: 2006-06-2087

PATIENT
  Age: 55 Year
  Sex: Female

DRUGS (3)
  1. DESLORATADINE [Suspect]
     Indication: URTICARIA
     Dosage: 1 DF; QD; PO
     Route: 048
     Dates: start: 20030101
  2. ERYTHROMYCIN [Suspect]
     Indication: DRUG USE FOR UNKNOWN INDICATION
     Dates: start: 20060101, end: 20060101
  3. COZAAR [Concomitant]

REACTIONS (1)
  - CHOLESTASIS [None]
